FAERS Safety Report 21546863 (Version 1)
Quarter: 2022Q4

REPORT INFORMATION
  Report Type: Spontaneous
  Country: FR (occurrence: FR)
  Receive Date: 20221103
  Receipt Date: 20221103
  Transmission Date: 20230113
  Serious: Yes (Hospitalization)
  Sender: FDA-Public Use
  Company Number: None

PATIENT
  Age: 15 Year
  Sex: Male
  Weight: 65 kg

DRUGS (9)
  1. METHOTREXATE [Suspect]
     Active Substance: METHOTREXATE
     Indication: Autoinflammatory disease
     Dosage: UNIT DOSE : 10 MG, FREQUENCY TIME : 1 WEEKS, DURATION : 177 DAYS
     Route: 065
     Dates: start: 20210729, end: 20220122
  2. RUXOLITINIB [Suspect]
     Active Substance: RUXOLITINIB
     Indication: Autoinflammatory disease
     Dosage: STRENGTH : 20 MG, UNIT DOSE : 40 MG, FREQUENCY TIME : 1 DAY, DURATION : 167 DAYS
     Route: 065
     Dates: start: 20210407, end: 20210921
  3. PREDNISONE [Suspect]
     Active Substance: PREDNISONE
     Indication: Autoinflammatory disease
     Dosage: UNIT DOSE : 7.5 MG, FREQUENCY TIME : 1 DAY, DURATION : 7 YEARS
     Route: 065
     Dates: start: 201311, end: 202109
  4. PREDNISONE [Suspect]
     Active Substance: PREDNISONE
     Dosage: UNIT DOSE :20  MG, FREQUENCY TIME : 1 DAY, THERAPY END DATE : NASK
     Route: 065
     Dates: start: 202109
  5. TRIAMCINOLONE HEXACETONIDE [Suspect]
     Active Substance: TRIAMCINOLONE HEXACETONIDE
     Indication: Autoinflammatory disease
     Dosage: STRENGTH : 2 PER CENT, DURATION : 1 DAY
     Route: 014
     Dates: start: 20210915, end: 20210915
  6. FOLIC ACID [Concomitant]
     Active Substance: FOLIC ACID
     Indication: Drug toxicity prophylaxis
     Dosage: UNIT DOSE AND STRENGTH : 5 MG, FREQUENCY TIME : 1 WEEKS
     Route: 065
  7. CALCIUM CARBONATE\CHOLECALCIFEROL [Concomitant]
     Active Substance: CALCIUM CARBONATE\CHOLECALCIFEROL
     Indication: Osteoporosis
     Dosage: UNIT DOSE : 2 DOSAGE FORMS, , FREQUENCY TIME : 1 DAY
  8. RAMIPRIL [Concomitant]
     Active Substance: RAMIPRIL
     Indication: Myopericarditis
     Dosage: FREQUENCY TIME : 1 DAY , UNIT DOSE : 10 MG
  9. BISOPROLOL FUMARATE [Concomitant]
     Active Substance: BISOPROLOL FUMARATE
     Indication: Myopericarditis
     Dosage: UNIT DOSE : 7.5 MG, FREQUENCY TIME : 1 DAY

REACTIONS (1)
  - Perineal abscess [Recovered/Resolved]

NARRATIVE: CASE EVENT DATE: 20210901
